FAERS Safety Report 15325500 (Version 1)
Quarter: 2018Q3

REPORT INFORMATION
  Report Type: Spontaneous
  Country: US (occurrence: US)
  Receive Date: 20180828
  Receipt Date: 20180828
  Transmission Date: 20181010
  Serious: Yes (Other)
  Sender: FDA-Public Use
  Company Number: US-SA-2018SA228191

PATIENT
  Sex: Female

DRUGS (1)
  1. PLAVIX [Suspect]
     Active Substance: CLOPIDOGREL BISULFATE
     Dosage: UNK UNK, UNK
     Route: 065

REACTIONS (11)
  - Hair growth abnormal [Recovering/Resolving]
  - Stress [Unknown]
  - Peripheral arterial occlusive disease [Unknown]
  - Nerve compression [Unknown]
  - Angioplasty [Unknown]
  - Limb discomfort [Unknown]
  - Gait disturbance [Unknown]
  - Angiopathy [Unknown]
  - Musculoskeletal discomfort [Unknown]
  - Contusion [Unknown]
  - Paraesthesia [Unknown]
